FAERS Safety Report 8342817-7 (Version None)
Quarter: 2012Q1

REPORT INFORMATION
  Report Type: 
  Country: None (occurrence: None)
  Receive Date: 20120330
  Receipt Date: 20010606
  Transmission Date: 20120608
  Serious: Yes (Hospitalization)
  Sender: FDA-Public Use
  Company Number: PHEH2001US05068

PATIENT
  Age: 86 Year
  Sex: Male

DRUGS (3)
  1. COUMADIN [Concomitant]
  2. EFFEXOR [Concomitant]
  3. EXELON [Suspect]
     Indication: DEMENTIA ALZHEIMER'S TYPE
     Dosage: 3 MG, BID, ORAL
     Route: 048
     Dates: start: 20001213, end: 20010512

REACTIONS (3)
  - HYPOKINESIA [None]
  - CEREBROVASCULAR ACCIDENT [None]
  - DYSARTHRIA [None]
